FAERS Safety Report 9577431 (Version 2)
Quarter: 2013Q4

REPORT INFORMATION
  Report Type: Spontaneous
  Country: US (occurrence: US)
  Receive Date: 20131001
  Receipt Date: 20131001
  Transmission Date: 20140711
  Serious: No
  Sender: FDA-Public Use
  Company Number: US-AMGEN-USASP2013000638

PATIENT
  Sex: Male
  Weight: 206 kg

DRUGS (4)
  1. ENBREL [Suspect]
     Indication: RHEUMATOID ARTHRITIS
     Dosage: 50 MG, QWK
     Route: 058
     Dates: start: 2000
  2. ENBREL [Suspect]
     Indication: PSORIATIC ARTHROPATHY
  3. ALLOPURINOL                        /00003302/ [Concomitant]
     Indication: GOUT
     Dosage: 300 MG, QD
     Route: 048
     Dates: start: 200603
  4. NABUMETONE [Concomitant]
     Indication: PSORIATIC ARTHROPATHY
     Dosage: 750 MG, BID
     Dates: start: 201108

REACTIONS (5)
  - Local swelling [Recovered/Resolved]
  - Furuncle [Not Recovered/Not Resolved]
  - Scab [Not Recovered/Not Resolved]
  - Pain [Not Recovered/Not Resolved]
  - Rash papular [Not Recovered/Not Resolved]
